FAERS Safety Report 6814318-6 (Version None)
Quarter: 2010Q3

REPORT INFORMATION
  Report Type: 
  Country: None (occurrence: None)
  Receive Date: 20100702
  Receipt Date: 20100624
  Transmission Date: 20110219
  Serious: Yes (Other)
  Sender: FDA-Public Use
  Company Number: ES-JNJFOC-20091207092

PATIENT
  Age: 39 Year
  Sex: Male

DRUGS (7)
  1. RISPERDAL CONSTA [Suspect]
     Indication: OBSESSIVE-COMPULSIVE DISORDER
     Route: 030
  2. RISPERDAL CONSTA [Suspect]
     Route: 030
  3. RISPERDAL CONSTA [Suspect]
     Route: 030
  4. TOPAMAX [Concomitant]
     Indication: OBSESSIVE-COMPULSIVE DISORDER
     Route: 048
  5. ANAFRANIL [Concomitant]
     Indication: SCHIZOPHRENIA
     Route: 065
  6. ZYPREXA [Concomitant]
     Indication: SCHIZOPHRENIA
     Route: 048
  7. ALOFEN [Concomitant]
     Indication: SCHIZOPHRENIA

REACTIONS (3)
  - OFF LABEL USE [None]
  - OVERDOSE [None]
  - THROMBOSIS [None]
